FAERS Safety Report 11620682 (Version 1)
Quarter: 2015Q4

REPORT INFORMATION
  Report Type: Spontaneous
  Country: IT (occurrence: JP)
  Receive Date: 20151012
  Receipt Date: 20151012
  Transmission Date: 20160304
  Serious: Yes (Hospitalization)
  Sender: FDA-Public Use
  Company Number: IT-SIGMA-TAU US-2015STPI000635

PATIENT
  Age: 29 Year
  Sex: Female

DRUGS (3)
  1. CARNITOR [Suspect]
     Active Substance: LEVOCARNITINE
     Indication: ACUTE HEPATIC FAILURE
     Dosage: 6000 MG, UNK
     Route: 042
     Dates: start: 20140906, end: 20140906
  2. CARNITOR [Suspect]
     Active Substance: LEVOCARNITINE
     Indication: HYPERAMMONAEMIA
  3. CARNITOR [Suspect]
     Active Substance: LEVOCARNITINE
     Indication: CARNITINE DEFICIENCY
     Dosage: 2000 MG, X2
     Route: 042
     Dates: start: 20140905, end: 20140907

REACTIONS (1)
  - Amylase increased [Unknown]

NARRATIVE: CASE EVENT DATE: 20140905
